FAERS Safety Report 18425789 (Version 1)
Quarter: 2020Q4

REPORT INFORMATION
  Report Type: Spontaneous
  Country: US (occurrence: US)
  Receive Date: 20201026
  Receipt Date: 20201026
  Transmission Date: 20210114
  Serious: Yes (Hospitalization, Other)
  Sender: FDA-Public Use
  Company Number: US-GLAXOSMITHKLINE-US2020AMR197875

PATIENT
  Sex: Female

DRUGS (2)
  1. ZEJULA [Suspect]
     Active Substance: NIRAPARIB
     Dosage: 200 MG, QD
  2. ZEJULA [Suspect]
     Active Substance: NIRAPARIB
     Indication: OVARIAN CANCER
     Dosage: 200 MG, QD
     Route: 048
     Dates: start: 20200915

REACTIONS (6)
  - Nausea [Recovered/Resolved]
  - Pulmonary oedema [Unknown]
  - Drug monitoring procedure incorrectly performed [Unknown]
  - Abdominal pain upper [Recovering/Resolving]
  - Vomiting [Unknown]
  - Product dose omission issue [Unknown]
